FAERS Safety Report 4588559-5 (Version None)
Quarter: 2005Q1

REPORT INFORMATION
  Report Type: 
  Country: None (occurrence: None)
  Receive Date: 20050215
  Receipt Date: 20050215
  Transmission Date: 20050727
  Serious: Yes (Disabling)
  Sender: FDA-Public Use
  Company Number: None

PATIENT
  Sex: Female
  Weight: 74.8435 kg

DRUGS (1)
  1. ZICAM NO-DRIP  ZICAM LLC PHOENIX, [Suspect]

REACTIONS (2)
  - ANOSMIA [None]
  - PAROSMIA [None]
